FAERS Safety Report 19950430 (Version 1)
Quarter: 2021Q4

REPORT INFORMATION
  Report Type: Report from Study
  Country: DE (occurrence: DE)
  Receive Date: 20211013
  Receipt Date: 20211013
  Transmission Date: 20220304
  Serious: Yes (Hospitalization)
  Sender: FDA-Public Use
  Company Number: DE-AMGEN-DEUNI2021157231

PATIENT
  Sex: Female

DRUGS (6)
  1. ETANERCEPT [Suspect]
     Active Substance: ETANERCEPT
     Indication: Product used for unknown indication
     Dosage: 50 MG
     Route: 065
     Dates: start: 201407, end: 201709
  2. ETANERCEPT [Suspect]
     Active Substance: ETANERCEPT
     Dosage: 50 MG
     Route: 065
     Dates: start: 201807
  3. ETANERCEPT [Suspect]
     Active Substance: ETANERCEPT
     Dosage: 50 MG
     Route: 065
     Dates: start: 202007
  4. ERELZI [Suspect]
     Active Substance: ETANERCEPT-SZZS
     Indication: Product used for unknown indication
     Dosage: 25 MG
     Route: 065
     Dates: start: 201910, end: 202002
  5. HUMIRA [Suspect]
     Active Substance: ADALIMUMAB
     Indication: Product used for unknown indication
     Dosage: 40 MG
     Route: 065
     Dates: start: 201709, end: 201802
  6. ETANERCEPT [Suspect]
     Active Substance: ETANERCEPT
     Indication: Product used for unknown indication
     Dosage: UNK
     Route: 065
     Dates: start: 201803, end: 201807

REACTIONS (1)
  - Normochromic normocytic anaemia [Recovered/Resolved]

NARRATIVE: CASE EVENT DATE: 20200501
